FAERS Safety Report 4811145-6 (Version None)
Quarter: 2005Q4

REPORT INFORMATION
  Report Type: 
  Country: None (occurrence: None)
  Receive Date: 20051027
  Receipt Date: 20051021
  Transmission Date: 20060501
  Serious: Yes (Death)
  Sender: FDA-Public Use
  Company Number: 2005SM000008

PATIENT
  Age: 74 Year
  Sex: Male

DRUGS (7)
  1. CHLORAMBUCIL [Suspect]
     Route: 048
     Dates: start: 20041221, end: 20050117
  2. SALBUTAMOL [Concomitant]
     Dates: start: 20041125
  3. ACETYLCYSTEINE [Concomitant]
     Dates: start: 20020101
  4. FUROSEMIDE [Concomitant]
     Dates: start: 20020101
  5. SIMVASTATIN [Concomitant]
     Dates: start: 20020101
  6. ATENOLOL [Concomitant]
     Dates: start: 20020101
  7. ALLOPURINOL [Concomitant]
     Dates: start: 20050107

REACTIONS (1)
  - CARDIAC ARREST [None]
